FAERS Safety Report 17997179 (Version 1)
Quarter: 2020Q3

REPORT INFORMATION
  Report Type: Spontaneous
  Country: PL (occurrence: PL)
  Receive Date: 20200708
  Receipt Date: 20200708
  Transmission Date: 20201103
  Serious: Yes (Hospitalization)
  Sender: FDA-Public Use
  Company Number: PL-MYLANLABS-2020M1053852

PATIENT
  Age: 70 Year
  Sex: Female
  Weight: 31 kg

DRUGS (3)
  1. INSULIN GLARGINE [Suspect]
     Active Substance: INSULIN GLARGINE
     Indication: PRODUCT USED FOR UNKNOWN INDICATION
     Dosage: 2 DOSAGE FORM, QD (2X PER DAY BEFORE BREAKFAST AND BEFORE DINNER)
  2. METFORMIN [Suspect]
     Active Substance: METFORMIN HYDROCHLORIDE
     Indication: TYPE 2 DIABETES MELLITUS
     Dosage: 1000 MG THREE TIMES PER DAY (3000 MG, QD)
     Route: 065
  3. GLICLAZIDE [Concomitant]
     Active Substance: GLICLAZIDE
     Indication: TYPE 2 DIABETES MELLITUS
     Dosage: 60 MG 1X DAY
     Route: 065

REACTIONS (5)
  - Drug ineffective [Unknown]
  - Blood glucose abnormal [Recovered/Resolved]
  - Hyperglycaemia [Recovered/Resolved]
  - Therapeutic product effect incomplete [Recovered/Resolved]
  - Glycosylated haemoglobin increased [Recovered/Resolved]
